FAERS Safety Report 19388815 (Version 1)
Quarter: 2021Q2

REPORT INFORMATION
  Report Type: Spontaneous
  Country: US (occurrence: US)
  Receive Date: 20210607
  Receipt Date: 20210607
  Transmission Date: 20210717
  Serious: Yes (Disabling, Other)
  Sender: FDA-Public Use
  Company Number: None

PATIENT
  Age: 62 Year
  Sex: Female
  Weight: 72 kg

DRUGS (1)
  1. METOPROLOL SUCCINATE ER 24HR 50 MG TABGENERIC FOR TOPROLXL [Suspect]
     Active Substance: METOPROLOL SUCCINATE
     Indication: BLOOD PRESSURE ABNORMAL

REACTIONS (23)
  - Headache [None]
  - Peripheral coldness [None]
  - Dyspnoea [None]
  - Confusional state [None]
  - Memory impairment [None]
  - Dizziness [None]
  - Dyspepsia [None]
  - Insomnia [None]
  - Decreased appetite [None]
  - Diarrhoea [None]
  - Abdominal pain upper [None]
  - Gastric disorder [None]
  - Nausea [None]
  - Abdominal pain [None]
  - Constipation [None]
  - Anxiety [None]
  - Vision blurred [None]
  - Palpitations [None]
  - Fatigue [None]
  - Taste disorder [None]
  - Dry mouth [None]
  - Somnolence [None]
  - Cardiac flutter [None]

NARRATIVE: CASE EVENT DATE: 20210602
